FAERS Safety Report 11702929 (Version 1)
Quarter: 2015Q4

REPORT INFORMATION
  Report Type: Spontaneous
  Country: US (occurrence: US)
  Receive Date: 20151104
  Receipt Date: 20151104
  Transmission Date: 20160304
  Serious: No
  Sender: FDA-Public Use
  Company Number: US-ELI_LILLY_AND_COMPANY-US201101005218

PATIENT
  Sex: Female

DRUGS (3)
  1. NIACIN. [Concomitant]
     Active Substance: NIACIN
  2. FORTEO [Suspect]
     Active Substance: TERIPARATIDE
     Indication: OSTEOPOROSIS
     Dosage: UNK, DAILY (1/D)
  3. VITAMINS [Concomitant]
     Active Substance: VITAMINS

REACTIONS (7)
  - Feeling abnormal [Unknown]
  - Asthenia [Unknown]
  - Heart rate increased [Recovered/Resolved]
  - Anxiety [Unknown]
  - Hypertension [Unknown]
  - Nervousness [Unknown]
  - Insomnia [Recovered/Resolved]
